FAERS Safety Report 4455303-1 (Version None)
Quarter: 2004Q3

REPORT INFORMATION
  Report Type: 
  Country: None (occurrence: None)
  Receive Date: 20040825
  Receipt Date: 20040708
  Transmission Date: 20050211
  Serious: No
  Sender: FDA-Public Use
  Company Number: 207715

PATIENT
  Age: 45 Year
  Sex: Female

DRUGS (1)
  1. RAPTIVA [Suspect]
     Indication: PSORIASIS
     Dosage: 1.03 ML,1/WEEK,SUBCUTANEOUS
     Route: 058
     Dates: start: 20040406, end: 20040706

REACTIONS (1)
  - PSORIASIS [None]
